FAERS Safety Report 9709959 (Version 2)
Quarter: 2013Q4

REPORT INFORMATION
  Report Type: Spontaneous
  Country: FR (occurrence: FR)
  Receive Date: 20131126
  Receipt Date: 20131126
  Transmission Date: 20140711
  Serious: Yes (Hospitalization, Other)
  Sender: FDA-Public Use
  Company Number: FR-JNJFOC-20131008779

PATIENT
  Age: 78 Year
  Sex: Male

DRUGS (7)
  1. XARELTO [Suspect]
     Indication: CEREBROVASCULAR ACCIDENT PROPHYLAXIS
     Dosage: 4 DAYS BEFORE PROSTATE BIOPSY
     Route: 048
  2. XARELTO [Suspect]
     Indication: ATRIAL FIBRILLATION
     Dosage: 4 DAYS BEFORE PROSTATE BIOPSY
     Route: 048
  3. ENOXAPARIN [Suspect]
     Indication: BIOPSY PROSTATE
     Dosage: 4 DAYS BEFORE AND 48 HRS AFTER PROSTATE BIOPSY
     Route: 065
  4. ENOXAPARIN [Suspect]
     Indication: ATRIAL FIBRILLATION
     Dosage: 4 DAYS BEFORE AND 48 HRS AFTER PROSTATE BIOPSY
     Route: 065
  5. OLMESARTAN [Concomitant]
     Indication: HYPERTENSION
     Route: 065
  6. HYDROCHLOROTHIAZIDE [Concomitant]
     Indication: HYPERTENSION
     Route: 065
  7. RILMENIDINE [Concomitant]
     Route: 065

REACTIONS (3)
  - Haematuria [Recovered/Resolved]
  - Ischaemic stroke [Unknown]
  - Inappropriate schedule of drug administration [Unknown]
